FAERS Safety Report 7765727-2 (Version None)
Quarter: 2011Q3

REPORT INFORMATION
  Report Type: 
  Country: None (occurrence: None)
  Receive Date: 20110921
  Receipt Date: 20110906
  Transmission Date: 20111222
  Serious: Yes (Other)
  Sender: FDA-Public Use
  Company Number: PHHY2011BR53992

PATIENT
  Sex: Female

DRUGS (6)
  1. DIOVAN [Suspect]
     Indication: HYPERTENSION
     Dosage: 80 MG OF VALSARTAN, DAILY
  2. DIOVAN [Suspect]
     Dosage: 2 TABLETS OF 80 MG VALSARTAN, DAILY
  3. EXFORGE [Suspect]
     Dosage: 80 MG VALSARTAN AND 5 MG OF AMLODIPINE
     Dates: start: 20110616
  4. PRELONE [Suspect]
  5. EXFORGE [Suspect]
     Dosage: 160 MG VALSARTAN AND 5 MG AMLODIPINE
  6. AMLODIPINE BESYLATE [Suspect]
     Indication: BLOOD PRESSURE

REACTIONS (11)
  - BLOOD PRESSURE INADEQUATELY CONTROLLED [None]
  - HAEMATOMA [None]
  - DENGUE FEVER [None]
  - WHITE BLOOD CELL COUNT INCREASED [None]
  - CAPILLARY FRAGILITY [None]
  - RHINITIS ALLERGIC [None]
  - BLOOD GLUCOSE INCREASED [None]
  - METABOLIC DISORDER [None]
  - EAR PAIN [None]
  - NONSPECIFIC REACTION [None]
  - DARK CIRCLES UNDER EYES [None]
